FAERS Safety Report 19483933 (Version 1)
Quarter: 2021Q3

REPORT INFORMATION
  Report Type: Report from Study
  Country: US (occurrence: US)
  Receive Date: 20210701
  Receipt Date: 20210701
  Transmission Date: 20211014
  Serious: Yes (Hospitalization)
  Sender: FDA-Public Use
  Company Number: US-BAYER-2021-136325

PATIENT
  Age: 63 Year
  Sex: Female

DRUGS (2)
  1. STIVARGA [Suspect]
     Active Substance: REGORAFENIB
     Indication: COLON CANCER
     Dosage: 80 MG DAILY X 1 WEEK
     Dates: start: 20210423, end: 20210429
  2. STIVARGA [Suspect]
     Active Substance: REGORAFENIB
     Indication: COLON CANCER
     Dosage: 120 MG DAILY X 1 WEEK
     Dates: start: 20210430, end: 20210506

REACTIONS (4)
  - Off label use [None]
  - Hypertension [None]
  - Hypotension [None]
  - Hospitalisation [None]
